FAERS Safety Report 8236889-8 (Version None)
Quarter: 2012Q1

REPORT INFORMATION
  Report Type: 
  Country: None (occurrence: None)
  Receive Date: 20120327
  Receipt Date: 20110523
  Transmission Date: 20120608
  Serious: No
  Sender: FDA-Public Use
  Company Number: US-GLAXOSMITHKLINE-A0928561A

PATIENT
  Age: 57 Year
  Sex: Male

DRUGS (1)
  1. LUXIQ [Suspect]
     Indication: HAIR DISORDER
     Route: 061
     Dates: start: 20100101

REACTIONS (3)
  - DRUG INEFFECTIVE [None]
  - APPLICATION SITE ERYTHEMA [None]
  - PRODUCT QUALITY ISSUE [None]
